FAERS Safety Report 4481903-9 (Version None)
Quarter: 2004Q4

REPORT INFORMATION
  Report Type: 
  Country: None (occurrence: None)
  Receive Date: 20041022
  Receipt Date: 20041014
  Transmission Date: 20050328
  Serious: Yes (Other)
  Sender: FDA-Public Use
  Company Number: CA-JNJFOC-20040404052

PATIENT
  Sex: Female
  Weight: 56.5 kg

DRUGS (1)
  1. REMICADE [Suspect]
     Indication: CROHN'S DISEASE
     Route: 042
     Dates: start: 20040311, end: 20040311

REACTIONS (3)
  - BACK PAIN [None]
  - DEMYELINATION [None]
  - TYPE III IMMUNE COMPLEX MEDIATED REACTION [None]
